FAERS Safety Report 4988226-X (Version None)
Quarter: 2006Q2

REPORT INFORMATION
  Report Type: 
  Country: None (occurrence: None)
  Receive Date: 20060501
  Receipt Date: 20060123
  Transmission Date: 20061013
  Serious: Yes (Death, Hospitalization)
  Sender: FDA-Public Use
  Company Number: US-MERCK-0601USA02723

PATIENT
  Age: 50 Year
  Sex: Female
  Weight: 70 kg

DRUGS (2)
  1. VIOXX [Suspect]
     Indication: ARTHRITIS
     Route: 048
     Dates: start: 20020601, end: 20021130
  2. TYLENOL (CAPLET) [Concomitant]
     Route: 065

REACTIONS (22)
  - ANAEMIA [None]
  - ANAEMIA MACROCYTIC [None]
  - ANKLE FRACTURE [None]
  - ARTERIOSCLEROSIS CORONARY ARTERY [None]
  - ARTHRALGIA [None]
  - ARTHRITIS INFECTIVE [None]
  - BLOOD TRIGLYCERIDES INCREASED [None]
  - DRUG LEVEL ABOVE THERAPEUTIC [None]
  - DYSARTHRIA [None]
  - EPISTAXIS [None]
  - FACIAL BONES FRACTURE [None]
  - FALL [None]
  - FRACTURE DISPLACEMENT [None]
  - HAEMATOCRIT DECREASED [None]
  - HAEMOGLOBIN DECREASED [None]
  - HEMIPARESIS [None]
  - JOINT STABILISATION [None]
  - OVARIAN CANCER [None]
  - PAIN IN EXTREMITY [None]
  - RENAL FAILURE [None]
  - VISUAL DISTURBANCE [None]
  - WRIST FRACTURE [None]
